FAERS Safety Report 14527966 (Version 2)
Quarter: 2018Q1

REPORT INFORMATION
  Report Type: Report from Study
  Country: US (occurrence: US)
  Receive Date: 20180213
  Receipt Date: 20180312
  Transmission Date: 20180509
  Serious: Yes (Life-Threatening, Hospitalization)
  Sender: FDA-Public Use
  Company Number: US-TAKEDA-2018TUS003735

PATIENT
  Sex: Male

DRUGS (1)
  1. VEDOLIZUMAB [Suspect]
     Active Substance: VEDOLIZUMAB
     Indication: COLITIS ULCERATIVE
     Dosage: UNK
     Route: 042
     Dates: start: 20170307

REACTIONS (3)
  - Large intestinal stenosis [Recovered/Resolved]
  - Colitis ulcerative [Recovered/Resolved]
  - Colon dysplasia [Recovered/Resolved]

NARRATIVE: CASE EVENT DATE: 20180109
